FAERS Safety Report 4490897-1 (Version None)
Quarter: 2004Q4

REPORT INFORMATION
  Report Type: 
  Country: None (occurrence: None)
  Receive Date: 20041027
  Receipt Date: 20041013
  Transmission Date: 20050328
  Serious: Yes (Death)
  Sender: FDA-Public Use
  Company Number: 2004239329NO

PATIENT
  Age: 75 Year
  Sex: Male

DRUGS (1)
  1. ZYVOXID (LINEZOLID) SOLUTION, STERILE [Suspect]
     Indication: POSTOPERATIVE INFECTION
     Dates: start: 20040806

REACTIONS (1)
  - PANCYTOPENIA [None]
